FAERS Safety Report 4636030-4 (Version None)
Quarter: 2005Q2

REPORT INFORMATION
  Report Type: 
  Country: None (occurrence: None)
  Receive Date: 20050331
  Receipt Date: 20040418
  Transmission Date: 20051028
  Serious: Yes (Life-Threatening, Other)
  Sender: FDA-Public Use
  Company Number: 200411890BCC

PATIENT
  Age: 43 Year
  Sex: Female
  Weight: 56.246 kg

DRUGS (1)
  1. ALEVE [Suspect]
     Dosage: 220 MG, TOTAL DAILY, ORAL
     Route: 048
     Dates: start: 20040417

REACTIONS (1)
  - HYPERSENSITIVITY [None]
